FAERS Safety Report 17175908 (Version 1)
Quarter: 2019Q4

REPORT INFORMATION
  Report Type: Spontaneous
  Country: US (occurrence: US)
  Receive Date: 20191219
  Receipt Date: 20191219
  Transmission Date: 20200122
  Serious: No
  Sender: FDA-Public Use
  Company Number: US-COOPERSURGICAL, INC.-US-2019CPS002349

PATIENT
  Age: 46 Year
  Sex: Female
  Weight: 73.47 kg

DRUGS (2)
  1. MULTIVITAMINS                      /07504101/ [Concomitant]
     Active Substance: VITAMINS
     Indication: VITAMIN SUPPLEMENTATION
     Dosage: UNK
     Route: 065
  2. PARAGARD T 380A [Suspect]
     Active Substance: COPPER
     Indication: CONTRACEPTION
     Dosage: UNK
     Route: 015
     Dates: start: 20130402, end: 20190723

REACTIONS (6)
  - Inadequate lubrication [Unknown]
  - Dysuria [Unknown]
  - Type 2 diabetes mellitus [Not Recovered/Not Resolved]
  - Device material issue [Recovered/Resolved]
  - Device expulsion [Recovered/Resolved]
  - Micturition disorder [Unknown]

NARRATIVE: CASE EVENT DATE: 2015
